FAERS Safety Report 12976415 (Version 1)
Quarter: 2016Q4

REPORT INFORMATION
  Report Type: Spontaneous
  Country: US (occurrence: US)
  Receive Date: 20161127
  Receipt Date: 20161127
  Transmission Date: 20170207
  Serious: No
  Sender: FDA-Public Use
  Company Number: US-ASTRAZENECA-2016SF21532

PATIENT
  Age: 21516 Day
  Sex: Female
  Weight: 104.3 kg

DRUGS (1)
  1. BYDUREON [Suspect]
     Active Substance: EXENATIDE
     Indication: DIABETES MELLITUS
     Route: 058
     Dates: start: 201608

REACTIONS (3)
  - Injection site haemorrhage [Unknown]
  - Diabetes mellitus inadequate control [Unknown]
  - Injection site mass [Unknown]

NARRATIVE: CASE EVENT DATE: 20161114
